FAERS Safety Report 9418992 (Version 2)
Quarter: 2013Q4

REPORT INFORMATION
  Report Type: Report from Study
  Country: CZ (occurrence: CZ)
  Receive Date: 20130725
  Receipt Date: 20131231
  Transmission Date: 20140711
  Serious: Yes (Life-Threatening)
  Sender: FDA-Public Use
  Company Number: CZ-SANOFI-AVENTIS-2013SA072415

PATIENT
  Age: 63 Year
  Sex: Male
  Weight: 75 kg

DRUGS (6)
  1. CABAZITAXEL [Suspect]
     Indication: PRODUCT USED FOR UNKNOWN INDICATION
     Route: 042
     Dates: start: 20130521, end: 20130702
  2. ANTINEOPLASTIC AGENTS [Suspect]
     Indication: PRODUCT USED FOR UNKNOWN INDICATION
     Route: 042
     Dates: start: 20130514, end: 20130702
  3. PREDNISONE [Concomitant]
     Indication: PROPHYLAXIS
     Dosage: PART OF STUDY MEDICATION
     Route: 048
     Dates: start: 20130521
  4. PEGFILGRASTIM [Concomitant]
     Indication: PROPHYLAXIS
     Route: 058
     Dates: start: 20130521
  5. METHOXY POLYETHYLENE GLYCOL-EPOETIN BETA [Concomitant]
     Indication: ANAEMIA PROPHYLAXIS
     Route: 058
     Dates: start: 20130611
  6. HYDROMORPHONE [Concomitant]
     Indication: PAIN
     Route: 048
     Dates: start: 20130405

REACTIONS (1)
  - Hyperuricaemia [Unknown]
